FAERS Safety Report 22325526 (Version 1)
Quarter: 2023Q2

REPORT INFORMATION
  Report Type: Spontaneous
  Country: US (occurrence: US)
  Receive Date: 20230516
  Receipt Date: 20230516
  Transmission Date: 20230722
  Serious: No
  Sender: FDA-Public Use
  Company Number: US-SA-SAC20230515001484

PATIENT
  Sex: Female
  Weight: 25.85 kg

DRUGS (1)
  1. ALDURAZYME [Suspect]
     Active Substance: LARONIDASE
     Indication: Mucopolysaccharidosis I
     Dosage: 13.92 MG, QW
     Route: 042
     Dates: start: 201811

REACTIONS (1)
  - Weight decreased [Unknown]
